FAERS Safety Report 17450808 (Version 1)
Quarter: 2020Q1

REPORT INFORMATION
  Report Type: Spontaneous
  Country: PR (occurrence: PR)
  Receive Date: 20200224
  Receipt Date: 20200224
  Transmission Date: 20200409
  Serious: No
  Sender: FDA-Public Use
  Company Number: PR-JNJFOC-20200229558

PATIENT
  Age: 36 Year
  Sex: Female

DRUGS (4)
  1. PREZCOBIX [Suspect]
     Active Substance: COBICISTAT\DARUNAVIR ETHANOLATE
     Indication: HIV INFECTION
     Dosage: ONE COURSE, 1 TABLET
     Route: 048
     Dates: start: 20150910
  2. TRUVADA [Suspect]
     Active Substance: EMTRICITABINE\TENOFOVIR DISOPROXIL FUMARATE
     Indication: HIV INFECTION
     Dosage: ONE COURSE,  1 TABLET
     Route: 048
     Dates: start: 20150215
  3. PREZISTA [Suspect]
     Active Substance: DARUNAVIR ETHANOLATE
     Indication: HIV INFECTION
     Route: 048
     Dates: start: 20150215, end: 20150910
  4. NORVIR [Suspect]
     Active Substance: RITONAVIR
     Indication: HIV INFECTION
     Dosage: ONE COURSE
     Route: 048
     Dates: start: 20150215, end: 20150910

REACTIONS (1)
  - Exposure during pregnancy [Recovered/Resolved]
